FAERS Safety Report 12178920 (Version 1)
Quarter: 2016Q1

REPORT INFORMATION
  Report Type: Spontaneous
  Country: US (occurrence: US)
  Receive Date: 20160314
  Receipt Date: 20160314
  Transmission Date: 20160526
  Serious: No
  Sender: FDA-Public Use
  Company Number: US-SA-2016SA025631

PATIENT
  Age: 73 Year
  Sex: Male

DRUGS (5)
  1. LANTUS [Concomitant]
     Active Substance: INSULIN GLARGINE
     Dates: start: 201601
  2. SOLOSTAR [Concomitant]
     Active Substance: DEVICE
     Dates: start: 201502, end: 201601
  3. NOVOLOG [Concomitant]
     Active Substance: INSULIN ASPART
  4. TOUJEO [Suspect]
     Active Substance: INSULIN GLARGINE
     Indication: TYPE 2 DIABETES MELLITUS
     Dosage: DOSE:62 UNIT(S)
     Route: 065
     Dates: start: 201502, end: 201601
  5. LANTUS [Concomitant]
     Active Substance: INSULIN GLARGINE
     Dosage: START DDATE: 10-15 YEARS AGO

REACTIONS (2)
  - Blood glucose abnormal [Unknown]
  - Glycosylated haemoglobin increased [Unknown]
